FAERS Safety Report 7176930-7 (Version None)
Quarter: 2010Q4

REPORT INFORMATION
  Report Type: 
  Country: None (occurrence: None)
  Receive Date: 20101220
  Receipt Date: 20101214
  Transmission Date: 20110411
  Serious: Yes (Hospitalization)
  Sender: FDA-Public Use
  Company Number: US-ELI_LILLY_AND_COMPANY-US201009007613

PATIENT
  Sex: Male
  Weight: 79.819 kg

DRUGS (16)
  1. PEMETREXED [Suspect]
     Indication: NON-SMALL CELL LUNG CANCER STAGE IV
     Dosage: 500 MG/M2, OTHER
     Route: 042
     Dates: start: 20100622, end: 20100803
  2. CARBOPLATIN [Suspect]
     Indication: NON-SMALL CELL LUNG CANCER STAGE IV
     Dosage: 6 D/F, OTHER
     Route: 042
     Dates: start: 20100622, end: 20100803
  3. BEVACIZUMAB [Suspect]
     Indication: NON-SMALL CELL LUNG CANCER STAGE IV
     Dosage: 15 MG/KG, OTHER
     Route: 042
     Dates: start: 20100622, end: 20100803
  4. NEXIUM [Concomitant]
     Indication: PEPTIC ULCER
     Dosage: 40 MG, DAILY (1/D)
     Dates: start: 20090101
  5. BYSTOLIC [Concomitant]
     Indication: HYPERTENSION
     Dosage: 10 MG, EACH EVENING
     Dates: start: 20100101
  6. COMPAZINE [Concomitant]
     Dosage: 10 MG, AS NEEDED
  7. FOLIC ACID [Concomitant]
     Dosage: 1 MG, 2/D
     Dates: start: 20100115
  8. MEGACE [Concomitant]
     Indication: WEIGHT DECREASED
     Dosage: 625 D/F, EACH EVENING
     Dates: start: 20100810
  9. ALLEGRA [Concomitant]
     Dosage: 180 MG, EACH EVENING
  10. TIMOPTIC [Concomitant]
     Dosage: UNK, 2/D
     Route: 047
  11. DIFLUPREDNATE [Concomitant]
     Dosage: UNK, 4/D
     Route: 047
  12. CIPROFLOXACIN [Concomitant]
     Indication: URINARY TRACT INFECTION
     Dosage: 500 MG, OTHER
  13. ZESTRIL [Concomitant]
     Indication: HYPERTENSION
     Dosage: 5 MG, UNKNOWN
     Dates: start: 20080101
  14. VITAMIN B-12 [Concomitant]
     Dates: start: 20100115
  15. ASPIRIN [Concomitant]
  16. DECADRON [Concomitant]

REACTIONS (2)
  - INAPPROPRIATE ANTIDIURETIC HORMONE SECRETION [None]
  - URINARY TRACT INFECTION [None]
